FAERS Safety Report 9889038 (Version 1)
Quarter: 2014Q1

REPORT INFORMATION
  Report Type: Spontaneous
  Country: US (occurrence: None)
  Receive Date: 20140210
  Receipt Date: 20140210
  Transmission Date: 20141002
  Serious: Yes (Other)
  Sender: FDA-Public Use
  Company Number: None

PATIENT
  Age: 55 Year
  Sex: Female
  Weight: 55.34 kg

DRUGS (2)
  1. MELOXICAM [Suspect]
     Indication: FOOT OPERATION
     Dosage: AFTER MEAL, TAKEN BY MOUTH
     Dates: start: 20140127, end: 20140206
  2. MELOXICAM [Suspect]
     Indication: BUNION
     Dosage: AFTER MEAL, TAKEN BY MOUTH
     Dates: start: 20140127, end: 20140206

REACTIONS (5)
  - Dizziness [None]
  - Confusional state [None]
  - Aphasia [None]
  - Dysarthria [None]
  - VIIth nerve paralysis [None]
